FAERS Safety Report 14561341 (Version 2)
Quarter: 2018Q1

REPORT INFORMATION
  Report Type: Spontaneous
  Country: US (occurrence: US)
  Receive Date: 20180222
  Receipt Date: 20180321
  Transmission Date: 20180509
  Serious: No
  Sender: FDA-Public Use
  Company Number: US-PFIZER INC-2018074896

PATIENT
  Age: 66 Year
  Sex: Female

DRUGS (1)
  1. ELELYSO [Suspect]
     Active Substance: TALIGLUCERASE ALFA
     Indication: GAUCHER^S DISEASE
     Dosage: 3400 IU, ONCE EVERY 2 WEEKS
     Route: 042
     Dates: start: 201007

REACTIONS (1)
  - Blood pressure increased [Recovering/Resolving]
